FAERS Safety Report 17874680 (Version 6)
Quarter: 2020Q4

REPORT INFORMATION
  Report Type: Report from Study
  Country: CO (occurrence: CO)
  Receive Date: 20200609
  Receipt Date: 20201201
  Transmission Date: 20210113
  Serious: Yes (Hospitalization)
  Sender: FDA-Public Use
  Company Number: NVSC2020CO158427

PATIENT
  Sex: Female
  Weight: 62 kg

DRUGS (5)
  1. MEKINIST [Suspect]
     Active Substance: TRAMETINIB DIMETHYL SULFOXIDE
     Dosage: 2 MG, QD
     Route: 048
  2. TAFINLAR [Suspect]
     Active Substance: DABRAFENIB MESYLATE
     Dosage: 300 MG, QD
     Route: 048
  3. MEKINIST [Suspect]
     Active Substance: TRAMETINIB DIMETHYL SULFOXIDE
     Indication: METASTATIC MALIGNANT MELANOMA
     Dosage: 2 MG, QD
     Route: 048
     Dates: start: 202005
  4. TAFINLAR [Suspect]
     Active Substance: DABRAFENIB MESYLATE
     Indication: METASTATIC MALIGNANT MELANOMA
     Dosage: 150 MG, Q12H (EVERY 12 HOURS/ONE IN THE MORNING AND ONE IN THE AFTERNOON)
     Route: 048
     Dates: start: 202005
  5. TAFINLAR [Suspect]
     Active Substance: DABRAFENIB MESYLATE
     Dosage: 75 MG, Q12H (EVERY 12 HOURS/ONE IN THE MORNING AND ONE IN THE AFTERNOON)
     Route: 048

REACTIONS (21)
  - Renal failure [Unknown]
  - Oedema peripheral [Not Recovered/Not Resolved]
  - Anxiety [Unknown]
  - Swelling face [Unknown]
  - Burning sensation [Unknown]
  - Weight increased [Unknown]
  - Malaise [Unknown]
  - Pruritus [Unknown]
  - Hyperhidrosis [Unknown]
  - Inappropriate schedule of product administration [Unknown]
  - Onychoclasis [Unknown]
  - Drug intolerance [Unknown]
  - Alopecia [Unknown]
  - Rash [Unknown]
  - Paraesthesia [Unknown]
  - Pyrexia [Unknown]
  - Pigmentation disorder [Unknown]
  - Blood pressure increased [Unknown]
  - Nausea [Unknown]
  - Vomiting [Unknown]
  - Pain in extremity [Unknown]
